FAERS Safety Report 5779283-1 (Version None)
Quarter: 2008Q2

REPORT INFORMATION
  Report Type: 
  Country: None (occurrence: None)
  Receive Date: 20080619
  Receipt Date: 20080616
  Transmission Date: 20081010
  Serious: Yes (Hospitalization)
  Sender: FDA-Public Use
  Company Number: AU-WYE-G01719808

PATIENT
  Age: 57 Year
  Sex: Female

DRUGS (6)
  1. DIMETAPP DAY [Suspect]
     Indication: INFLUENZA
     Dosage: 2 CAPSULES MORNING, MIDDAY AND AFTERNOON
     Route: 048
     Dates: start: 20080529, end: 20080530
  2. DIMETAPP DAY [Suspect]
     Indication: NASOPHARYNGITIS
  3. VENTOLIN [Concomitant]
     Indication: ASTHMA
  4. SPIRIVA [Concomitant]
     Indication: ASTHMA
  5. DIMETAPP NIGHT [Suspect]
     Indication: NASOPHARYNGITIS
     Dosage: 2 CAPSULES BEFORE BEDTIME
     Route: 048
     Dates: start: 20080529, end: 20080530
  6. DIMETAPP NIGHT [Suspect]
     Indication: INFLUENZA

REACTIONS (3)
  - ASTHMA [None]
  - CONDITION AGGRAVATED [None]
  - PNEUMONIA [None]
